FAERS Safety Report 4771547-3 (Version None)
Quarter: 2005Q3

REPORT INFORMATION
  Report Type: 
  Country: None (occurrence: None)
  Receive Date: 20050916
  Receipt Date: 20050908
  Transmission Date: 20060218
  Serious: Yes (Other)
  Sender: FDA-Public Use
  Company Number: US-BOEHRINGER INGELHEIM PHARMACEUTICALS, INC.-2005-BP-15879BP

PATIENT

DRUGS (1)
  1. MOBIC [Suspect]
     Route: 048
     Dates: start: 20041101

REACTIONS (3)
  - CHRONIC MYELOID LEUKAEMIA [None]
  - MYELOFIBROSIS [None]
  - MYELOPROLIFERATIVE DISORDER [None]
